FAERS Safety Report 16126171 (Version 4)
Quarter: 2019Q3

REPORT INFORMATION
  Report Type: Spontaneous
  Country: US (occurrence: US)
  Receive Date: 20190328
  Receipt Date: 20190827
  Transmission Date: 20191004
  Serious: No
  Sender: FDA-Public Use
  Company Number: US-SA-2019SA084365

PATIENT
  Age: 63 Year
  Sex: Male
  Weight: 68 kg

DRUGS (6)
  1. EUCRISA [Concomitant]
     Active Substance: CRISABOROLE
  2. ZYRTEC [Concomitant]
     Active Substance: CETIRIZINE HYDROCHLORIDE
  3. DUPIXENT [Suspect]
     Active Substance: DUPILUMAB
     Indication: DERMATITIS ATOPIC
     Dosage: 1 DF, QOW
     Route: 058
     Dates: start: 20190118
  4. CLARITINE [Concomitant]
     Active Substance: LORATADINE
  5. CLOBETASOL PROPIONATE. [Concomitant]
     Active Substance: CLOBETASOL PROPIONATE
  6. ASPIRIN EC [Concomitant]
     Active Substance: ASPIRIN

REACTIONS (3)
  - Pruritus [Unknown]
  - Eczema [Unknown]
  - Rash [Unknown]
